FAERS Safety Report 23617491 (Version 1)
Quarter: 2024Q1

REPORT INFORMATION
  Report Type: Spontaneous
  Country: US (occurrence: None)
  Receive Date: 20240310
  Receipt Date: 20240310
  Transmission Date: 20240410
  Serious: Yes (Other)
  Sender: FDA-Public Use
  Company Number: None

PATIENT
  Sex: Male

DRUGS (3)
  1. TIRZEPATIDE [Suspect]
     Active Substance: TIRZEPATIDE
     Indication: Type 2 diabetes mellitus
  2. SEMAGLUTIDE [Suspect]
     Active Substance: SEMAGLUTIDE
  3. TIRZEPATIDE [Concomitant]
     Active Substance: TIRZEPATIDE

REACTIONS (6)
  - Nausea [None]
  - Pancreatitis [None]
  - Injection site reaction [None]
  - Product storage error [None]
  - Product compounding quality issue [None]
  - Poor quality product administered [None]

NARRATIVE: CASE EVENT DATE: 20230222
